FAERS Safety Report 9047220 (Version 1)
Quarter: 2013Q1

REPORT INFORMATION
  Report Type: Report from Study
  Country: US (occurrence: US)
  Receive Date: 20130130
  Receipt Date: 20130130
  Transmission Date: 20140127
  Serious: No
  Sender: FDA-Public Use
  Company Number: US-ABBOTT-12P-163-0976074-00

PATIENT
  Age: 44 Year
  Sex: Female

DRUGS (4)
  1. HUMIRA [Suspect]
     Indication: ANKYLOSING SPONDYLITIS
     Dates: start: 20120731
  2. AMBIEN [Concomitant]
     Indication: INSOMNIA
     Dosage: AT NIGHT
  3. ADVIL [Concomitant]
     Indication: PRODUCT USED FOR UNKNOWN INDICATION
  4. FLEXERIL [Concomitant]
     Indication: MUSCULOSKELETAL STIFFNESS
     Dosage: 1/2 PILL AS NEEDED

REACTIONS (3)
  - Wrong technique in drug usage process [Recovered/Resolved]
  - Injection site bruising [Recovered/Resolved]
  - Incorrect dose administered [Recovered/Resolved]
